FAERS Safety Report 19907310 (Version 1)
Quarter: 2021Q3

REPORT INFORMATION
  Report Type: Report from Study
  Country: US (occurrence: US)
  Receive Date: 20210930
  Receipt Date: 20210930
  Transmission Date: 20211014
  Serious: Yes (Hospitalization)
  Sender: FDA-Public Use
  Company Number: US-TEVA-2021-US-1959712

PATIENT
  Age: 18 Year
  Sex: Male
  Weight: 118.8 kg

DRUGS (16)
  1. VINCRISTINE [Suspect]
     Active Substance: VINCRISTINE
     Dosage: 2 MG ONCE (DAYS 1, 11, 21, 31, 41 OF IM2)
     Route: 042
     Dates: start: 20210616
  2. METHOTREXATE. [Suspect]
     Active Substance: METHOTREXATE
     Indication: ACUTE LYMPHOCYTIC LEUKAEMIA
     Dosage: 50 MILLIGRAM, QWEEK
     Route: 048
     Dates: start: 20210811, end: 20210830
  3. METHOTREXATE. [Suspect]
     Active Substance: METHOTREXATE
     Indication: ACUTE LYMPHOCYTIC LEUKAEMIA
     Dosage: 100 MG/M2 ONCE ON DAYS (1, 11, 21,31, 41 OF IM2)
     Route: 042
     Dates: start: 20210528, end: 20210607
  4. METHOTREXATE. [Suspect]
     Active Substance: METHOTREXATE
     Dosage: 15 MILLIGRAM, DAY 1AND C1D29 LAST
     Route: 037
  5. OXYCODONE [Concomitant]
     Active Substance: OXYCODONE
     Dates: start: 20200928
  6. METHOTREXATE. [Suspect]
     Active Substance: METHOTREXATE
     Dosage: 100 MG/M2 ONCE ON DAYS (1, 11, 21,31, 41 OF IM2)
     Route: 042
     Dates: start: 20210616
  7. MERCAPTOPURINE. [Suspect]
     Active Substance: MERCAPTOPURINE
     Indication: ACUTE LYMPHOCYTIC LEUKAEMIA
     Dosage: 200 MG X4 DAYS/WEEK, 175 MG X3 DAYS/WEEK, DAYS 1?84
     Route: 048
     Dates: start: 20210811, end: 20210830
  8. VINCRISTINE [Suspect]
     Active Substance: VINCRISTINE
     Indication: ACUTE LYMPHOCYTIC LEUKAEMIA
     Dosage: 2 MG ONCE (DAYS 1, 11, 21, 31, 41 OF IM2)
     Route: 042
     Dates: start: 20210528, end: 20210607
  9. INCB018424 [Suspect]
     Active Substance: RUXOLITINIB
     Dosage: 100 MG BID, (DAYS 1?14, 29?42 AND 57?70)
     Route: 048
     Dates: start: 20210528, end: 20210604
  10. PREDNISONE. [Suspect]
     Active Substance: PREDNISONE
     Indication: ACUTE LYMPHOCYTIC LEUKAEMIA
     Dosage: 100 MILLIGRAM DAILY; 1?5, 29?33 AND 57?61
     Route: 048
     Dates: start: 20210811
  11. INCB018424 [Suspect]
     Active Substance: RUXOLITINIB
     Indication: ACUTE LYMPHOCYTIC LEUKAEMIA
     Dosage: 50 MG/M2 BID, (DAYS 1?10, 21?30, 41?50 OF IM2)
     Route: 048
     Dates: start: 20210528, end: 20210604
  12. VINCRISTINE [Suspect]
     Active Substance: VINCRISTINE
     Dosage: 2 MILLIGRAM, DAYS 1, 29 AND 57
     Route: 042
     Dates: start: 20210811
  13. METHOTREXATE. [Suspect]
     Active Substance: METHOTREXATE
     Route: 048
     Dates: start: 20210913
  14. MERCAPTOPURINE. [Suspect]
     Active Substance: MERCAPTOPURINE
     Dosage: 200 MG X4 DAYS/WEEK, 175 MG X3 DAYS/WEEK, DAYS 1?84
     Route: 048
     Dates: start: 20210831
  15. METHOTREXATE. [Suspect]
     Active Substance: METHOTREXATE
     Indication: ACUTE LYMPHOCYTIC LEUKAEMIA
     Dosage: 15 MILLIGRAM ONCE ON DAYS (1, 31 OF IM2)
     Route: 037
     Dates: start: 20210528
  16. PEGASPARGASE [Suspect]
     Active Substance: PEGASPARGASE
     Indication: ACUTE LYMPHOCYTIC LEUKAEMIA
     Dosage: 2,500 IU/M2/DOSE, ONCE ON DAYS 2, 22 OF IM2
     Route: 042
     Dates: start: 20210529

REACTIONS (2)
  - Anorectal infection [Recovered/Resolved with Sequelae]
  - Anorectal infection [Recovered/Resolved]

NARRATIVE: CASE EVENT DATE: 20210604
